FAERS Safety Report 5283924-5 (Version None)
Quarter: 2007Q1

REPORT INFORMATION
  Report Type: 
  Country: None (occurrence: None)
  Receive Date: 20070327
  Receipt Date: 20070314
  Transmission Date: 20070707
  Serious: Yes (Hospitalization)
  Sender: FDA-Public Use
  Company Number: TPA2006A02289

PATIENT
  Age: 52 Year
  Sex: Female
  Weight: 81.7 kg

DRUGS (19)
  1. PIOGLITAZONE HCL [Suspect]
     Indication: GLUCOSE TOLERANCE IMPAIRED
     Dosage: PER ORAL
     Route: 048
     Dates: start: 20051017, end: 20051114
  2. PIOGLITAZONE HCL [Suspect]
     Indication: GLUCOSE TOLERANCE IMPAIRED
     Dosage: PER ORAL
     Route: 048
     Dates: start: 20051114, end: 20061121
  3. ZOLOFT [Concomitant]
  4. SYNTHROID [Concomitant]
  5. PREMARIN CREAM (ESTROGENS CONJUGATED) (CREAM) [Concomitant]
  6. ACTIVELLA [Concomitant]
  7. MUCINEX [Concomitant]
  8. NASONEX (MOMETASONE FUROATE) (NASAL DROPS (INCLUDING NASAL SPRAY)) [Concomitant]
  9. ASPIRIN [Concomitant]
  10. LUTEIN (XANTOFYL) (TABLETS) [Concomitant]
  11. RESTASIS (CICLOSPORIN) (DROPS) [Concomitant]
  12. WOMAN'S ONE DAILY WITH CALCIUM, IRON, ZINC (ERGOCALCIFEROL, ASCORBIC A [Concomitant]
  13. GLUCOSAMINE AND CHONDROITIN (GLUCOSAMINE, CHONDROITIN SULFATE) (TABLET [Concomitant]
  14. FLAX OIL (LINUM USITATISSIMUM SEED OIL) [Concomitant]
  15. DIOVAN [Concomitant]
  16. LORTAB [Concomitant]
  17. NEXIUM [Concomitant]
  18. VYTORIN [Concomitant]
  19. VALTREX [Concomitant]

REACTIONS (2)
  - GASTROOESOPHAGEAL REFLUX DISEASE [None]
  - OESOPHAGOGASTRIC FUNDOPLASTY [None]
